FAERS Safety Report 9779613 (Version 1)
Quarter: 2013Q4

REPORT INFORMATION
  Report Type: Spontaneous
  Country: US (occurrence: US)
  Receive Date: 20131223
  Receipt Date: 20131223
  Transmission Date: 20140711
  Serious: No
  Sender: FDA-Public Use
  Company Number: US-PFIZER INC-2013363163

PATIENT
  Age: 64 Year
  Sex: Female

DRUGS (2)
  1. XELJANZ [Suspect]
     Indication: RHEUMATOID ARTHRITIS
     Dosage: 5 MG, 2X/DAY (TAKE 1 TABLET BY MOUTH TWICE A DAY)
     Route: 048
     Dates: start: 20131009
  2. NIACIN [Concomitant]
     Dosage: UNK
     Dates: start: 201310

REACTIONS (3)
  - Blood glucose increased [Unknown]
  - Blood cholesterol abnormal [Unknown]
  - Abdominal discomfort [Unknown]
